FAERS Safety Report 7685502-7 (Version None)
Quarter: 2011Q3

REPORT INFORMATION
  Report Type: 
  Country: None (occurrence: None)
  Receive Date: 20110816
  Receipt Date: 20110804
  Transmission Date: 20111222
  Serious: Yes (Hospitalization, Other)
  Sender: FDA-Public Use
  Company Number: US-ELI_LILLY_AND_COMPANY-US200910001529

PATIENT
  Sex: Female

DRUGS (26)
  1. PROZAC [Concomitant]
     Indication: DEPRESSION
     Dosage: 40 MG, QD
  2. SYNTHROID [Concomitant]
     Dosage: 0.125 UG, QD
  3. FORTEO [Suspect]
     Indication: OSTEOPOROSIS
     Dosage: 20 UG, DAILY (1/D)
     Route: 058
     Dates: start: 20090915
  4. FORTEO [Suspect]
     Dosage: 20 UG, DAILY (1/D)
     Route: 058
  5. XANAX [Concomitant]
     Dosage: UP TO 1 MG, PRN
  6. ZYRTEC [Concomitant]
     Indication: HYPERSENSITIVITY
  7. ANCEF [Concomitant]
     Route: 042
  8. VITAMIN TAB [Concomitant]
  9. MIDODRINE HYDROCHLORIDE [Concomitant]
     Dosage: 5 MG, BID
  10. CALCIUM CARBONATE [Concomitant]
     Dosage: 1800 MG, QD
     Route: 042
  11. FERROUS SULFATE TAB [Concomitant]
  12. FORTEO [Suspect]
     Dosage: 20 UG, QD
     Route: 058
  13. LEVOXYL [Concomitant]
     Indication: THYROID DISORDER
     Dosage: 125 UG, UNK
  14. PLAQUENIL [Concomitant]
     Indication: SJOGREN'S SYNDROME
     Dosage: UNK, BID
  15. VITAMIN B-12 [Concomitant]
     Dosage: 500 UG, QD
     Dates: start: 20020101
  16. FORTEO [Suspect]
     Dosage: 20 UG, DAILY (1/D)
     Route: 058
  17. FORTEO [Suspect]
     Dosage: 20 UG, QD
     Route: 058
     Dates: start: 20110527
  18. NEURONTIN [Concomitant]
     Dosage: 100 UG, BID
  19. RESTORIL [Concomitant]
     Indication: SLEEP DISORDER
     Dosage: 30 UG, UNK
  20. ABILIFY [Concomitant]
     Dosage: 5 UG, QD
  21. PRILOSEC [Concomitant]
     Dosage: 40 MG, QD
  22. TRAZODONE HCL [Concomitant]
     Indication: SLEEP DISORDER
     Dosage: 200 UG, EACH EVENING
  23. VIBRAMYCIN /00055702/ [Concomitant]
     Route: 042
  24. VITAMIN D [Concomitant]
     Indication: VITAMIN D DECREASED
     Dosage: 3000 IU, QD
     Route: 042
  25. FORTEO [Suspect]
     Dosage: 20 UG, DAILY (1/D)
     Route: 058
  26. PHENERGAN HCL [Concomitant]
     Dosage: 25 UG, PRN

REACTIONS (32)
  - PAIN IN EXTREMITY [None]
  - ARTHROPATHY [None]
  - LOSS OF CONSCIOUSNESS [None]
  - VITAMIN D DECREASED [None]
  - BALANCE DISORDER [None]
  - HYPERSENSITIVITY [None]
  - INJECTION SITE PAIN [None]
  - INFECTION [None]
  - CONVULSION [None]
  - X-RAY ABNORMAL [None]
  - EXOSTOSIS [None]
  - DIZZINESS [None]
  - HEADACHE [None]
  - DEVICE MISUSE [None]
  - WOUND DRAINAGE [None]
  - STAPHYLOCOCCAL INFECTION [None]
  - SEROMA [None]
  - PROCEDURAL PAIN [None]
  - BACK PAIN [None]
  - FEELING ABNORMAL [None]
  - ARTHRALGIA [None]
  - HIP ARTHROPLASTY [None]
  - FALL [None]
  - DISTURBANCE IN ATTENTION [None]
  - VERTIGO [None]
  - HUMERUS FRACTURE [None]
  - ATAXIA [None]
  - HAEMORRHAGE [None]
  - POST-TRAUMATIC PAIN [None]
  - OROPHARYNGEAL PAIN [None]
  - INJECTION SITE HAEMATOMA [None]
  - DECREASED APPETITE [None]
